FAERS Safety Report 15403947 (Version 1)
Quarter: 2018Q3

REPORT INFORMATION
  Report Type: Spontaneous
  Country: US (occurrence: US)
  Receive Date: 20180919
  Receipt Date: 20180919
  Transmission Date: 20181010
  Serious: No
  Sender: FDA-Public Use
  Company Number: US-AVADEL SPECIALTY PHARMACEUTICALS, LLC-2018AVA00319

PATIENT
  Age: 89 Year
  Sex: Male

DRUGS (5)
  1. PREDNISONE ACETATE [Concomitant]
     Active Substance: PREDNISONE ACETATE
  2. ALFUZOSIN HCL ER [Concomitant]
     Active Substance: ALFUZOSIN HYDROCHLORIDE
  3. NOCTIVA [Suspect]
     Active Substance: DESMOPRESSIN ACETATE
     Dosage: 1.66 ?G, ONCE
     Dates: start: 20180718, end: 20180718
  4. DONEPEZIL. [Concomitant]
     Active Substance: DONEPEZIL
     Dosage: 1 TABLET AT NIGHT
  5. TIMOLOL MALEATE. [Concomitant]
     Active Substance: TIMOLOL MALEATE

REACTIONS (3)
  - Sneezing [Recovered/Resolved]
  - Hypersensitivity [Recovered/Resolved]
  - Rhinalgia [Recovered/Resolved]

NARRATIVE: CASE EVENT DATE: 20180718
